FAERS Safety Report 16204441 (Version 2)
Quarter: 2019Q3

REPORT INFORMATION
  Report Type: Spontaneous
  Country: JP (occurrence: JP)
  Receive Date: 20190416
  Receipt Date: 20190708
  Transmission Date: 20191004
  Serious: Yes (Other)
  Sender: FDA-Public Use
  Company Number: JP-BAYER-2019-075359

PATIENT
  Age: 77 Year
  Sex: Male

DRUGS (1)
  1. XOFIGO [Suspect]
     Active Substance: RADIUM RA-223 DICHLORIDE
     Indication: HORMONE-REFRACTORY PROSTATE CANCER
     Dosage: 55KB/KG, Q1MON
     Route: 042
     Dates: start: 20181119, end: 20190311

REACTIONS (2)
  - Hormone-refractory prostate cancer [None]
  - Compression fracture [Recovering/Resolving]

NARRATIVE: CASE EVENT DATE: 20190315
